FAERS Safety Report 24183228 (Version 1)
Quarter: 2024Q3

REPORT INFORMATION
  Report Type: Spontaneous
  Country: GB (occurrence: GB)
  Receive Date: 20240807
  Receipt Date: 20240807
  Transmission Date: 20241017
  Serious: Yes (Disabling, Other)
  Sender: BOEHRINGER INGELHEIM
  Company Number: None

PATIENT
  Sex: Female

DRUGS (1)
  1. EMPAGLIFLOZIN [Suspect]
     Active Substance: EMPAGLIFLOZIN
     Indication: Blood glucose abnormal

REACTIONS (17)
  - Tachycardia [Recovered/Resolved]
  - Dysphagia [Unknown]
  - Migraine [Recovered/Resolved]
  - Chromaturia [Unknown]
  - Joint stiffness [Unknown]
  - Dehydration [Unknown]
  - Thirst [Not Recovered/Not Resolved]
  - Fatigue [Not Recovered/Not Resolved]
  - Pollakiuria [Recovered/Resolved]
  - Nausea [Unknown]
  - Pain [Not Recovered/Not Resolved]
  - Decreased appetite [Unknown]
  - Pain of skin [Unknown]
  - Joint warmth [Unknown]
  - Feeling hot [Unknown]
  - Dry mouth [Unknown]
  - Peripheral swelling [Recovered/Resolved]
